FAERS Safety Report 8386839-9 (Version None)
Quarter: 2012Q2

REPORT INFORMATION
  Report Type: 
  Country: None (occurrence: None)
  Receive Date: 20120525
  Receipt Date: 20120515
  Transmission Date: 20120825
  Serious: Yes (Hospitalization)
  Sender: FDA-Public Use
  Company Number: US-PFIZER INC-2012119431

PATIENT
  Sex: Male
  Weight: 41.7 kg

DRUGS (8)
  1. CARBOPLATIN [Suspect]
     Indication: HEAD AND NECK CANCER
  2. FLUOROURACIL [Suspect]
     Indication: METASTATIC SQUAMOUS CELL CARCINOMA
     Dosage: 1000 MG/M2 ON DAYS ONE TO FOUR
     Route: 042
     Dates: start: 20120319
  3. FLUOROURACIL [Suspect]
     Indication: HEAD AND NECK CANCER
  4. CARBOPLATIN [Suspect]
     Indication: METASTATIC SQUAMOUS CELL CARCINOMA
     Dosage: AUC 5
     Route: 042
     Dates: start: 20120319
  5. OXYCONTIN [Concomitant]
     Indication: TUMOUR PAIN
     Dosage: UNK
     Dates: start: 20120201
  6. BLINDED THERAPY [Suspect]
     Indication: HEAD AND NECK CANCER
  7. BLINDED THERAPY [Suspect]
     Indication: METASTATIC SQUAMOUS CELL CARCINOMA
     Dosage: 400 MG/M2, ON DAY ONE OF CYCLE ONE ONLY
     Route: 042
     Dates: start: 20120307, end: 20120307
  8. OXYCODONE [Concomitant]
     Indication: TUMOUR PAIN
     Dosage: UNK
     Dates: start: 20120201

REACTIONS (24)
  - HYPOKALAEMIA [None]
  - INCREASED VISCOSITY OF BRONCHIAL SECRETION [None]
  - ANION GAP INCREASED [None]
  - BLOOD CREATININE INCREASED [None]
  - ANAEMIA [None]
  - BLOOD GLUCOSE INCREASED [None]
  - RED BLOOD CELL SCHISTOCYTES PRESENT [None]
  - HYPOALBUMINAEMIA [None]
  - ELECTROLYTE IMBALANCE [None]
  - RED BLOOD CELL MACROCYTES PRESENT [None]
  - DRUG HYPERSENSITIVITY [None]
  - HYPOCHROMASIA [None]
  - FALL [None]
  - WHITE BLOOD CELL COUNT DECREASED [None]
  - GAIT DISTURBANCE [None]
  - LACERATION [None]
  - LYMPHOCYTE PERCENTAGE INCREASED [None]
  - BLOOD UREA INCREASED [None]
  - NEUTROPHIL COUNT DECREASED [None]
  - LEUKOPENIA [None]
  - ALCOHOL USE [None]
  - PLATELET COUNT DECREASED [None]
  - THROMBOCYTOPENIA [None]
  - BLOOD CHLORIDE DECREASED [None]
